FAERS Safety Report 9731219 (Version 2)
Quarter: 2014Q3

REPORT INFORMATION
  Report Type: Spontaneous
  Country: US (occurrence: US)
  Receive Date: 20131203
  Receipt Date: 20140703
  Transmission Date: 20150326
  Serious: Yes (Other)
  Sender: FDA-Public Use
  Company Number: US-BAYER-2013-144811

PATIENT
  Age: 38 Year
  Sex: Female
  Weight: 136.5 kg

DRUGS (2)
  1. MIRENA [Suspect]
     Active Substance: LEVONORGESTREL
     Indication: MENORRHAGIA
     Dosage: 20 MCG/24HR, CONT
     Route: 015
     Dates: start: 201311, end: 201401
  2. MIRENA [Suspect]
     Active Substance: LEVONORGESTREL
     Indication: CONTRACEPTION
     Dosage: 20 MCG/24HR, CONT
     Route: 015
     Dates: start: 20130925, end: 20131121

REACTIONS (3)
  - Genital haemorrhage [None]
  - Device expulsion [Recovered/Resolved]
  - Device expulsion [None]

NARRATIVE: CASE EVENT DATE: 201401
